FAERS Safety Report 8019272-X (Version None)
Quarter: 2012Q1

REPORT INFORMATION
  Report Type: 
  Country: None (occurrence: None)
  Receive Date: 20120103
  Receipt Date: 20111220
  Transmission Date: 20120608
  Serious: Yes (Life-Threatening)
  Sender: FDA-Public Use
  Company Number: GB-TEVA-314756ISR

PATIENT
  Age: 61 Year
  Sex: Female
  Weight: 62 kg

DRUGS (16)
  1. ACETAMINOPHEN [Concomitant]
     Dates: start: 20110815, end: 20110912
  2. DOXAZOSIN MESYLATE [Concomitant]
     Dates: start: 20110823, end: 20111205
  3. ALBUTEROL SULFATE AUTOHALER [Concomitant]
     Dates: start: 20110815, end: 20110912
  4. ATORVASTATIN [Concomitant]
     Dates: start: 20110823, end: 20111205
  5. FUROSEMIDE [Concomitant]
     Dates: start: 20110823, end: 20111205
  6. DESMOPRESSIN ACETATE [Suspect]
     Dates: start: 20111128
  7. LOSARTAN POTASSIUM [Concomitant]
     Dates: start: 20110823, end: 20111205
  8. PREGABALIN [Concomitant]
     Dates: start: 20110909
  9. ALBUTEROL SULFATE AUTOHALER [Concomitant]
     Dates: start: 20111103, end: 20111201
  10. CARBOCISTEINE [Concomitant]
     Dates: start: 20110815
  11. DIAZEPAM [Concomitant]
     Dates: start: 20111010, end: 20111109
  12. DICLOFENAC SODIUM [Concomitant]
     Dates: start: 20110815
  13. TRAMADOL HCL [Concomitant]
     Dates: start: 20110815, end: 20110914
  14. TIOPRONIN [Concomitant]
     Dates: start: 20110815, end: 20110912
  15. TIOPRONIN [Concomitant]
     Dates: start: 20111103, end: 20111201
  16. VENLAFAXINE [Concomitant]
     Dates: start: 20110815, end: 20111201

REACTIONS (1)
  - DYSPNOEA [None]
